FAERS Safety Report 6798077-1 (Version None)
Quarter: 2010Q2

REPORT INFORMATION
  Report Type: 
  Country: None (occurrence: None)
  Receive Date: 20100616
  Receipt Date: 20100609
  Transmission Date: 20101027
  Serious: Yes (Hospitalization, Disabling, Other)
  Sender: FDA-Public Use
  Company Number: 2009-189370-NL

PATIENT
  Age: 31 Year
  Sex: Female
  Weight: 106.6 kg

DRUGS (5)
  1. NUVARING [Suspect]
     Indication: CONTRACEPTION
     Dosage: 1 DF;QM; VAG
     Route: 067
     Dates: start: 20060601, end: 20061201
  2. LEVOXYL [Concomitant]
  3. SYNTHROID [Concomitant]
  4. SINGULAIR [Concomitant]
  5. ALBUTEROL [Concomitant]

REACTIONS (30)
  - ABASIA [None]
  - ACROCHORDON [None]
  - ANAEMIA [None]
  - ANTIPHOSPHOLIPID ANTIBODIES [None]
  - ARTHRITIS [None]
  - BACK PAIN [None]
  - BLOOD ALKALINE PHOSPHATASE INCREASED [None]
  - CARPAL TUNNEL SYNDROME [None]
  - CONJUNCTIVITIS ALLERGIC [None]
  - DEEP VEIN THROMBOSIS [None]
  - DYSSTASIA [None]
  - EPICONDYLITIS [None]
  - FOOT FRACTURE [None]
  - GASTRIC ULCER [None]
  - GASTROOESOPHAGEAL REFLUX DISEASE [None]
  - HEADACHE [None]
  - HYPERKERATOSIS [None]
  - INSOMNIA [None]
  - IRON DEFICIENCY [None]
  - MEAN CELL VOLUME DECREASED [None]
  - MELANOCYTIC NAEVUS [None]
  - MENISCUS LESION [None]
  - NIGHTMARE [None]
  - OSTEOARTHRITIS [None]
  - OVARIAN CYST RUPTURED [None]
  - PLANTAR FASCIITIS [None]
  - PROTEINURIA [None]
  - RHINITIS ALLERGIC [None]
  - SCIATICA [None]
  - VISUAL IMPAIRMENT [None]
